FAERS Safety Report 22355582 (Version 1)
Quarter: 2023Q2

REPORT INFORMATION
  Report Type: Spontaneous
  Country: CN (occurrence: CN)
  Receive Date: 20230523
  Receipt Date: 20230523
  Transmission Date: 20230722
  Serious: Yes (Other)
  Sender: FDA-Public Use
  Company Number: CN-BAYER-2023A066345

PATIENT
  Age: 35 Year
  Sex: Female
  Weight: 45 kg

DRUGS (1)
  1. YAZ [Suspect]
     Active Substance: DROSPIRENONE\ETHINYL ESTRADIOL
     Indication: Menstrual disorder
     Dosage: 1 DF, QD
     Route: 048
     Dates: start: 20230416, end: 20230508

REACTIONS (6)
  - Dizziness [Recovering/Resolving]
  - Nausea [Unknown]
  - Hunger [Unknown]
  - Palpitations [Unknown]
  - Vaginal haemorrhage [Unknown]
  - Off label use [None]

NARRATIVE: CASE EVENT DATE: 20230416
